FAERS Safety Report 4499507-0 (Version None)
Quarter: 2004Q4

REPORT INFORMATION
  Report Type: 
  Country: None (occurrence: None)
  Receive Date: 20040928
  Receipt Date: 20040728
  Transmission Date: 20050328
  Serious: No
  Sender: FDA-Public Use
  Company Number: 04P-163-0264637-00

PATIENT
  Age: 69 Year
  Sex: Female
  Weight: 59.8748 kg

DRUGS (16)
  1. HUMIRA [Suspect]
     Indication: RHEUMATOID ARTHRITIS
     Dosage: SEE IMAGE
     Route: 058
     Dates: start: 20030408, end: 20040701
  2. HUMIRA [Suspect]
     Indication: RHEUMATOID ARTHRITIS
     Dosage: SEE IMAGE
     Route: 058
     Dates: start: 20040701
  3. METHOTREXATE [Concomitant]
  4. NSAID'S [Concomitant]
  5. PREDNISONE [Concomitant]
  6. LEVOTHYROXINE SODIUM [Concomitant]
  7. FOLIC ACID [Concomitant]
  8. PAROXETINE HYDROCHLORIDE [Concomitant]
  9. AMLODIPINE BESYLATE [Concomitant]
  10. ALENDRONATE SODIUM [Concomitant]
  11. RANITIDINE HYDROCHLORIDE [Concomitant]
  12. CALCIUM [Concomitant]
  13. MULTIVITAMIN [Concomitant]
  14. CLOFIBRATE [Concomitant]
  15. ASPIRIN [Concomitant]
  16. METOCLOPRAMIDE [Concomitant]

REACTIONS (1)
  - DRUG INEFFECTIVE [None]
